FAERS Safety Report 10309887 (Version 1)
Quarter: 2014Q3

REPORT INFORMATION
  Report Type: Spontaneous
  Country: US (occurrence: None)
  Receive Date: 20140715
  Receipt Date: 20140715
  Transmission Date: 20150326
  Serious: Yes (Hospitalization)
  Sender: FDA-Public Use
  Company Number: None

PATIENT
  Age: 57 Year
  Sex: Male
  Weight: 79.6 kg

DRUGS (6)
  1. ELOXATIN [Suspect]
     Active Substance: OXALIPLATIN
  2. 5-FLUOROURACIL (5-FU) [Suspect]
     Active Substance: FLUOROURACIL
  3. LISINOPRIL. [Concomitant]
     Active Substance: LISINOPRIL
  4. CAMPTOSAR [Suspect]
     Active Substance: IRINOTECAN HYDROCHLORIDE
  5. CAPECITABINE [Suspect]
     Active Substance: CAPECITABINE
  6. LEUCOVORIN CALCIUM. [Suspect]
     Active Substance: LEUCOVORIN CALCIUM

REACTIONS (4)
  - Cholangitis [None]
  - Pyrexia [None]
  - Hyperbilirubinaemia [None]
  - Device occlusion [None]

NARRATIVE: CASE EVENT DATE: 20140707
